FAERS Safety Report 9248510 (Version 4)
Quarter: 2013Q2

REPORT INFORMATION
  Report Type: Spontaneous
  Country: US (occurrence: US)
  Receive Date: 20130423
  Receipt Date: 20130618
  Transmission Date: 20140414
  Serious: Yes (Hospitalization)
  Sender: FDA-Public Use
  Company Number: US-GILEAD-2013-0073899

PATIENT
  Sex: Female

DRUGS (1)
  1. LETAIRIS [Suspect]
     Indication: PRODUCT USED FOR UNKNOWN INDICATION
     Dosage: 5 MG, UNK
     Dates: start: 20130410

REACTIONS (6)
  - Respiratory failure [Unknown]
  - Unevaluable event [Unknown]
  - Oedema [Unknown]
  - Dyspnoea [Unknown]
  - Anaemia [Unknown]
  - Swelling [Recovered/Resolved]
